FAERS Safety Report 8717138 (Version 2)
Quarter: 2012Q4

REPORT INFORMATION
  Report Type: 
  Country: FR (occurrence: FR)
  Receive Date: 20120810
  Receipt Date: 20121008
  Transmission Date: 20130627
  Serious: Yes (Other)
  Sender: FDA-Public Use
  Company Number: FR-NOVOPROD-357391

PATIENT
  Age: 41 Year
  Sex: Female

DRUGS (4)
  1. VICTOZA [Suspect]
     Indication: DIABETES MELLITUS
     Dosage: 1.2 mg, qd
     Route: 058
     Dates: start: 20111114, end: 20111214
  2. TAHOR [Concomitant]
  3. GLUCOPHAGE [Concomitant]
     Dosage: 1000 mg, qd
     Route: 048
     Dates: start: 20110613
  4. LEVOTHYROX [Concomitant]

REACTIONS (2)
  - Abortion spontaneous [Unknown]
  - Exposure during pregnancy [Recovered/Resolved]
